FAERS Safety Report 5427341-3 (Version None)
Quarter: 2007Q3

REPORT INFORMATION
  Report Type: 
  Country: None (occurrence: None)
  Receive Date: 20070828
  Receipt Date: 20070817
  Transmission Date: 20080115
  Serious: Yes (Hospitalization, Other)
  Sender: FDA-Public Use
  Company Number: DE-JNJFOC-20070803954

PATIENT
  Sex: Male
  Weight: 38.56 kg

DRUGS (10)
  1. REMICADE [Suspect]
     Route: 042
  2. REMICADE [Suspect]
     Route: 042
  3. REMICADE [Suspect]
     Route: 042
  4. REMICADE [Suspect]
     Route: 042
  5. REMICADE [Suspect]
     Indication: CROHN'S DISEASE
     Route: 042
  6. CELLCEPT [Concomitant]
     Indication: CROHN'S DISEASE
  7. AMLODIPINE [Concomitant]
     Indication: HYPERTENSION
  8. RAMIPRIL [Concomitant]
     Indication: HYPERTENSION
  9. ASPIRIN [Concomitant]
  10. PANTOPRAZOLE SODIUM [Concomitant]

REACTIONS (1)
  - ARTERIAL BYPASS OPERATION [None]
